FAERS Safety Report 11148412 (Version 5)
Quarter: 2015Q2

REPORT INFORMATION
  Report Type: Spontaneous
  Country: US (occurrence: US)
  Receive Date: 20150529
  Receipt Date: 20150630
  Transmission Date: 20150821
  Serious: Yes (Hospitalization)
  Sender: FDA-Public Use
  Company Number: US-HORIZON-RAV-0012-2015

PATIENT
  Age: 17 Year
  Sex: Female

DRUGS (4)
  1. ARGININE [Concomitant]
     Active Substance: ARGININE
     Indication: ORNITHINE TRANSCARBAMOYLASE DEFICIENCY
  2. CITRULLINE [Concomitant]
     Active Substance: CITRULLINE
     Indication: ORNITHINE TRANSCARBAMOYLASE DEFICIENCY
  3. RAVICTI [Suspect]
     Active Substance: GLYCEROL PHENYLBUTYRATE
     Indication: ORNITHINE TRANSCARBAMOYLASE DEFICIENCY
     Dosage: STARTING DOSAGE WAS 6 ML TID SINCE 27-MAY-2014
     Route: 048
     Dates: start: 20140604
  4. AMINO ACIDS [Concomitant]
     Active Substance: AMINO ACIDS
     Indication: ORNITHINE TRANSCARBAMOYLASE DEFICIENCY

REACTIONS (5)
  - Off label use [Unknown]
  - Ammonia increased [Recovered/Resolved]
  - Diet noncompliance [Unknown]
  - Treatment noncompliance [Unknown]
  - Pyrexia [Unknown]

NARRATIVE: CASE EVENT DATE: 20150517
